FAERS Safety Report 5567441-0 (Version None)
Quarter: 2007Q4

REPORT INFORMATION
  Report Type: 
  Country: None (occurrence: None)
  Receive Date: 20071214
  Receipt Date: 20071030
  Transmission Date: 20080405
  Serious: Yes (Disabling, Other)
  Sender: FDA-Public Use
  Company Number: 2007S1009239

PATIENT
  Age: 71 Year
  Sex: Male
  Weight: 75 kg

DRUGS (10)
  1. ACICLOVIR MERCK 5% (ACICLOVIR) (5 PCT) [Suspect]
     Indication: ULCERATIVE KERATITIS
     Dosage: 4 TIMES A DAY; OPHTHALMIC
     Route: 047
     Dates: start: 20060614, end: 20060617
  2. EURONAC (CON.) [Concomitant]
  3. STRESAM /00940201/ (CON.) [Concomitant]
  4. ZOVIRAX / 00587301 (PREV.) [Concomitant]
  5. VEXOL (CON.) [Concomitant]
  6. SIMVATIN (CON.) [Concomitant]
  7. GLUCOPHAGE /0082701/ (CON.) [Concomitant]
  8. ATACAND /01349502/ (CON.) [Concomitant]
  9. TEMESTA /00273201/ (CON.) [Concomitant]
  10. CIPROFLOXACIN /00697202/ (CON.) [Concomitant]

REACTIONS (12)
  - CORNEAL DISORDER [None]
  - CORNEAL OEDEMA [None]
  - DEPRESSION [None]
  - EYE INFLAMMATION [None]
  - EYE PAIN [None]
  - HEADACHE [None]
  - INCORRECT DOSE ADMINISTERED [None]
  - KERATITIS [None]
  - OCULAR HYPERAEMIA [None]
  - PHOTOPHOBIA [None]
  - THERMAL BURNS OF EYE [None]
  - VISUAL ACUITY REDUCED [None]
